FAERS Safety Report 15207238 (Version 1)
Quarter: 2018Q3

REPORT INFORMATION
  Report Type: Spontaneous
  Country: US (occurrence: US)
  Receive Date: 20180727
  Receipt Date: 20180727
  Transmission Date: 20181010
  Serious: Yes (Hospitalization)
  Sender: FDA-Public Use
  Company Number: PHEH2018US030593

PATIENT
  Sex: Female

DRUGS (2)
  1. AFINITOR [Suspect]
     Active Substance: EVEROLIMUS
     Indication: BREAST CANCER FEMALE
     Dosage: UNK
     Route: 065
  2. VIRAZIN [Concomitant]
     Indication: BREAST CANCER FEMALE
     Dosage: 150 MG, QD
     Route: 048

REACTIONS (8)
  - Constipation [Unknown]
  - Blood glucose increased [Unknown]
  - Blood pressure increased [Unknown]
  - Anaemia [Unknown]
  - Dehydration [Unknown]
  - Weight decreased [Unknown]
  - Palpitations [Unknown]
  - Syncope [Unknown]
